FAERS Safety Report 7097781-8 (Version None)
Quarter: 2010Q4

REPORT INFORMATION
  Report Type: 
  Country: None (occurrence: None)
  Receive Date: 20101112
  Receipt Date: 20101029
  Transmission Date: 20110411
  Serious: Yes (Hospitalization, Other)
  Sender: FDA-Public Use
  Company Number: GB-RANBAXY-2010R1-39360

PATIENT

DRUGS (3)
  1. PHENOBARBITAL [Suspect]
     Indication: EPILEPSY
     Dosage: UNK
     Route: 065
  2. PHENYTOIN [Suspect]
     Indication: EPILEPSY
     Dosage: UNK
     Route: 065
  3. TEICOPLANIN [Concomitant]
     Indication: SEPSIS
     Dosage: UNK
     Route: 065

REACTIONS (3)
  - RENAL FAILURE [None]
  - RESPIRATORY FAILURE [None]
  - TOXIC EPIDERMAL NECROLYSIS [None]
